FAERS Safety Report 22948559 (Version 2)
Quarter: 2024Q1

REPORT INFORMATION
  Report Type: Spontaneous
  Country: US (occurrence: US)
  Receive Date: 20230915
  Receipt Date: 20240223
  Transmission Date: 20240409
  Serious: No
  Sender: FDA-Public Use
  Company Number: US-MYLANLABS-2023M1096338

PATIENT
  Age: 59 Year
  Sex: Female
  Weight: 73.469 kg

DRUGS (4)
  1. SEMGLEE (INSULIN GLARGINE-YFGN) [Suspect]
     Active Substance: INSULIN GLARGINE-YFGN
     Indication: Diabetes mellitus
     Dosage: 18 INTERNATIONAL UNIT, QD, NIGHT
     Route: 058
     Dates: start: 20230813
  2. DEVICE [Suspect]
     Active Substance: DEVICE
     Indication: Diabetes mellitus
  3. METFORMIN [Concomitant]
     Active Substance: METFORMIN HYDROCHLORIDE
     Indication: Diabetes mellitus
     Dosage: UNK, BID
     Route: 065
  4. TRAMADOL [Concomitant]
     Active Substance: TRAMADOL\TRAMADOL HYDROCHLORIDE
     Indication: Lupus-like syndrome
     Dosage: UNK
     Route: 065

REACTIONS (3)
  - Blood glucose increased [Unknown]
  - Device delivery system issue [Unknown]
  - Product dose omission issue [Unknown]

NARRATIVE: CASE EVENT DATE: 20230904
